FAERS Safety Report 8150760-1 (Version None)
Quarter: 2012Q1

REPORT INFORMATION
  Report Type: 
  Country: None (occurrence: None)
  Receive Date: 20120220
  Receipt Date: 20120213
  Transmission Date: 20120608
  Serious: Yes (Hospitalization, Other)
  Sender: FDA-Public Use
  Company Number: DE-BAYER-2012-003116

PATIENT
  Age: 16 Year
  Sex: Female
  Weight: 53 kg

DRUGS (1)
  1. YAZ [Suspect]
     Dosage: UNK
     Route: 048
     Dates: start: 20110608, end: 20110614

REACTIONS (6)
  - DRUG INTOLERANCE [None]
  - TRANSAMINASES INCREASED [None]
  - LOCALISED OEDEMA [None]
  - HEPATOTOXICITY [None]
  - OEDEMA PERIPHERAL [None]
  - ABDOMINAL PAIN [None]
